FAERS Safety Report 5964591-1 (Version None)
Quarter: 2008Q4

REPORT INFORMATION
  Report Type: 
  Country: None (occurrence: None)
  Receive Date: 20081125
  Receipt Date: 20081119
  Transmission Date: 20090506
  Serious: Yes (Hospitalization)
  Sender: FDA-Public Use
  Company Number: US-JNJFOC-20081105058

PATIENT
  Sex: Female
  Weight: 52.62 kg

DRUGS (5)
  1. FENTANYL TRANSDERMAL SYSTEM [Suspect]
     Indication: BACK PAIN
     Route: 062
  2. DIOVAN [Concomitant]
     Indication: HEART VALVE INCOMPETENCE
     Route: 048
  3. PROPRANOLOL [Concomitant]
     Indication: VENTRICULAR EXTRASYSTOLES
     Route: 048
  4. FROVA [Concomitant]
     Indication: MIGRAINE
     Dosage: ONE AS NEEDED
     Route: 048
  5. OXYCONTIN [Concomitant]
     Indication: BREAKTHROUGH PAIN
     Route: 048

REACTIONS (4)
  - DRUG ADMINISTERED AT INAPPROPRIATE SITE [None]
  - FALL [None]
  - FIBULA FRACTURE [None]
  - TIBIA FRACTURE [None]
